FAERS Safety Report 26111558 (Version 1)
Quarter: 2025Q4

REPORT INFORMATION
  Report Type: Spontaneous
  Country: US (occurrence: US)
  Receive Date: 20251202
  Receipt Date: 20251202
  Transmission Date: 20260117
  Serious: Yes (Other)
  Sender: JOHNSON AND JOHNSON
  Company Number: US-JNJFOC-20251167147

PATIENT
  Age: 14 Year
  Sex: Male

DRUGS (3)
  1. RISPERDAL [Suspect]
     Active Substance: RISPERIDONE
     Indication: Affective disorder
     Route: 048
     Dates: start: 20120330, end: 20120418
  2. RISPERDAL [Suspect]
     Active Substance: RISPERIDONE
     Indication: Suicidal ideation
  3. RISPERDAL [Suspect]
     Active Substance: RISPERIDONE
     Indication: Aggression

REACTIONS (2)
  - Blood glucose fluctuation [Unknown]
  - Fatigue [Unknown]

NARRATIVE: CASE EVENT DATE: 20120401
